FAERS Safety Report 4862930-6 (Version None)
Quarter: 2005Q4

REPORT INFORMATION
  Report Type: 
  Country: None (occurrence: None)
  Receive Date: 20051221
  Receipt Date: 20050126
  Transmission Date: 20060501
  Serious: Yes (Death)
  Sender: FDA-Public Use
  Company Number: US-ABBOTT-05P-163-0288314-00

PATIENT
  Age: 50 Year
  Sex: Male

DRUGS (4)
  1. RITONAVIR SOFT GELATIN CAPSULES [Suspect]
     Indication: HIV INFECTION
     Route: 048
     Dates: start: 20030521, end: 20030707
  2. TIPRANAVIR [Concomitant]
     Indication: HIV INFECTION
     Route: 048
     Dates: start: 20030521, end: 20030707
  3. ENFUVIRTIDE [Concomitant]
     Indication: HIV INFECTION
     Dates: start: 20030120, end: 20030709
  4. LAMIVUDINE [Concomitant]
     Indication: HIV INFECTION
     Dates: start: 20021215, end: 20030707

REACTIONS (1)
  - DEATH [None]
